FAERS Safety Report 21220455 (Version 1)
Quarter: 2022Q3

REPORT INFORMATION
  Report Type: Report from Study
  Country: DE (occurrence: DE)
  Receive Date: 20220817
  Receipt Date: 20220817
  Transmission Date: 20221026
  Serious: Yes (Hospitalization, Other)
  Sender: FDA-Public Use
  Company Number: DE-TAKEDA-DE201724534

PATIENT
  Sex: Female
  Weight: 74 kg

DRUGS (10)
  1. TEDUGLUTIDE [Suspect]
     Active Substance: TEDUGLUTIDE
     Indication: Short-bowel syndrome
     Dosage: 1.9 MILLIGRAM, QD
     Route: 042
     Dates: start: 20170612, end: 20170727
  2. TEDUGLUTIDE [Suspect]
     Active Substance: TEDUGLUTIDE
     Indication: Short-bowel syndrome
     Dosage: 1.9 MILLIGRAM, QD
     Route: 042
     Dates: start: 20170612, end: 20170727
  3. TEDUGLUTIDE [Suspect]
     Active Substance: TEDUGLUTIDE
     Indication: Short-bowel syndrome
     Dosage: 1.9 MILLIGRAM, QD
     Route: 042
     Dates: start: 20170612, end: 20170727
  4. TEDUGLUTIDE [Suspect]
     Active Substance: TEDUGLUTIDE
     Indication: Short-bowel syndrome
     Dosage: 1.9 MILLIGRAM, QD
     Route: 042
     Dates: start: 20170612, end: 20170727
  5. SODIUM BICARBONATE [Concomitant]
     Active Substance: SODIUM BICARBONATE
     Indication: Nephropathy
     Dosage: UNK
     Route: 065
  6. RENVELA [Concomitant]
     Active Substance: SEVELAMER CARBONATE
     Indication: Nephropathy
     Dosage: UNK
     Route: 065
  7. VITAMINS NOS [Concomitant]
     Active Substance: VITAMINS
     Indication: Prophylaxis
     Dosage: UNK
     Route: 065
  8. METAMIZOLE SODIUM [Concomitant]
     Active Substance: METAMIZOLE SODIUM
     Indication: Pain
     Dosage: 30 GTT DROPS
     Route: 048
  9. CHROMIC CHLORIDE\CUPROUS CHLORIDE\FERRIC CHLORIDE\MANGANESE CHLORIDE\P [Concomitant]
     Active Substance: CHROMIC CHLORIDE\CUPROUS CHLORIDE\FERRIC CHLORIDE\MANGANESE CHLORIDE\POTASSIUM IODIDE\SODIUM FLUORID
     Indication: Short-bowel syndrome
     Dosage: 10 MILLILITER, QD
     Route: 042
     Dates: start: 201610, end: 201707
  10. .ALPHA.-TOCOPHEROL\ERGOCALCIFEROL\PHYTONADIONE\VITAMIN A [Concomitant]
     Active Substance: .ALPHA.-TOCOPHEROL\ERGOCALCIFEROL\PHYTONADIONE\VITAMIN A
     Indication: Short-bowel syndrome
     Dosage: 10 MILLILITER, QD
     Route: 042
     Dates: start: 201610, end: 201707

REACTIONS (1)
  - Shunt occlusion [Recovered/Resolved]

NARRATIVE: CASE EVENT DATE: 20170707
